FAERS Safety Report 21512839 (Version 1)
Quarter: 2022Q4

REPORT INFORMATION
  Report Type: Other
  Country: US (occurrence: None)
  Receive Date: 20221027
  Receipt Date: 20221027
  Transmission Date: 20230113
  Serious: Yes (Other)
  Sender: FDA-Public Use
  Company Number: US-ROCHE-3206085

PATIENT
  Age: 68 Year
  Sex: Female

DRUGS (3)
  1. XELODA [Suspect]
     Active Substance: CAPECITABINE
     Indication: Breast cancer female
     Dosage: TAKE 1 TABLET BY MOUTH TWICE A DAY 2 WEEKS ON, 1 WEEK OFF TAKE WITHIN 30 MIN AFTER THE END OF A MEAL
     Route: 048
  2. XELODA [Suspect]
     Active Substance: CAPECITABINE
     Indication: Bone cancer
  3. XELODA [Suspect]
     Active Substance: CAPECITABINE
     Indication: Metastases to lymph nodes

REACTIONS (2)
  - Deafness [Unknown]
  - Hypoacusis [Unknown]
